FAERS Safety Report 8553857-7 (Version None)
Quarter: 2012Q3

REPORT INFORMATION
  Report Type: 
  Country: None (occurrence: None)
  Receive Date: 20120731
  Receipt Date: 20070516
  Transmission Date: 20120928
  Serious: Yes (Other)
  Sender: FDA-Public Use
  Company Number: CO-PFIZER INC-2012180960

PATIENT
  Age: 71 Year
  Sex: Female

DRUGS (3)
  1. QUINAPRIL AND HYDROCHLOROTHIAZIDE [Suspect]
     Indication: HYPERTENSION
     Dosage: 20/12.5 MG, 1 DF 1X/DAY
  2. LIPITOR [Suspect]
     Indication: DYSLIPIDAEMIA
     Dosage: 10 MG, 1 DF 1X/DAY
  3. CIPROFLOXACIN HYDROCHLORIDE [Concomitant]
     Dosage: 2 DF, 2X/DAY

REACTIONS (3)
  - DYSPNOEA [None]
  - HYPERTENSIVE EMERGENCY [None]
  - CHEST PAIN [None]
